FAERS Safety Report 5328247-0 (Version None)
Quarter: 2007Q2

REPORT INFORMATION
  Report Type: 
  Country: None (occurrence: None)
  Receive Date: 20070515
  Receipt Date: 20070515
  Transmission Date: 20071010
  Serious: Yes (Hospitalization)
  Sender: FDA-Public Use
  Company Number: None

PATIENT
  Sex: Male
  Weight: 102 kg

DRUGS (12)
  1. INDOMETHACIN [Suspect]
     Indication: ARTHRALGIA
     Dosage: 50 MG DAILY (PO)
     Route: 048
  2. CLOPIDOGREL [Concomitant]
  3. ASPIRIN [Concomitant]
  4. ISOSORBIDE MONONITRATE [Concomitant]
  5. FERROUS SULFATE TAB [Concomitant]
  6. PREDNISONE TAB [Concomitant]
  7. FENOFIBRATE [Concomitant]
  8. EZETIMIBE [Concomitant]
  9. METFORMIN HCL [Concomitant]
  10. ATENOLOL [Concomitant]
  11. OMEPRAZOLE [Concomitant]
  12. ATORVASTATIN [Concomitant]

REACTIONS (4)
  - DUODENAL ULCER [None]
  - DYSPNOEA [None]
  - NAUSEA [None]
  - UPPER GASTROINTESTINAL HAEMORRHAGE [None]
